FAERS Safety Report 7006161-2 (Version None)
Quarter: 2010Q3

REPORT INFORMATION
  Report Type: 
  Country: None (occurrence: None)
  Receive Date: 20100921
  Receipt Date: 20100909
  Transmission Date: 20110219
  Serious: Yes (Other)
  Sender: FDA-Public Use
  Company Number: MA-PFIZER INC-2010104589

PATIENT
  Age: 65 Year
  Sex: Female

DRUGS (2)
  1. LYRICA [Suspect]
     Indication: NEURALGIA
     Dosage: 75 MG, 2X/DAY
     Route: 048
  2. KARDEGIC [Concomitant]
     Indication: HYPERTENSION
     Dosage: UNK

REACTIONS (2)
  - ABNORMAL BEHAVIOUR [None]
  - AMNESIA [None]
